FAERS Safety Report 6705385-9 (Version None)
Quarter: 2010Q2

REPORT INFORMATION
  Report Type: 
  Country: None (occurrence: None)
  Receive Date: 20100503
  Receipt Date: 20100428
  Transmission Date: 20101027
  Serious: Yes (Hospitalization)
  Sender: FDA-Public Use
  Company Number: AU-BIOGENIDEC-2010BI013609

PATIENT
  Age: 50 Year
  Sex: Female
  Weight: 55 kg

DRUGS (5)
  1. NATALIZUMAB [Suspect]
     Indication: MULTIPLE SCLEROSIS
     Route: 042
     Dates: start: 20070517
  2. IRBESARTAN [Concomitant]
     Route: 048
     Dates: start: 20071018
  3. ERGOCALCIFEROL [Concomitant]
     Route: 048
     Dates: start: 20081101
  4. LATANOPROST [Concomitant]
     Dosage: DOSE UNIT:1.5
     Dates: start: 20090914
  5. LEVLEN 28 [Concomitant]
     Route: 048
     Dates: start: 20060616

REACTIONS (1)
  - CHOLECYSTITIS [None]
